FAERS Safety Report 13113347 (Version 1)
Quarter: 2017Q1

REPORT INFORMATION
  Report Type: Spontaneous
  Country: US (occurrence: US)
  Receive Date: 20170113
  Receipt Date: 20170113
  Transmission Date: 20170428
  Serious: Yes (Hospitalization)
  Sender: FDA-Public Use
  Company Number: None

PATIENT
  Age: 50 Year
  Sex: Male
  Weight: 72 kg

DRUGS (1)
  1. MEMANTINE HYDROCHLORIDE. [Suspect]
     Active Substance: MEMANTINE HYDROCHLORIDE
     Dates: end: 20161228

REACTIONS (10)
  - Nausea [None]
  - Skin wound [None]
  - Abdominal pain [None]
  - Localised infection [None]
  - Endocarditis [None]
  - Chills [None]
  - Pain in extremity [None]
  - Abscess [None]
  - Small intestinal perforation [None]
  - Erythema [None]

NARRATIVE: CASE EVENT DATE: 20161228
